FAERS Safety Report 5862659-1 (Version None)
Quarter: 2008Q3

REPORT INFORMATION
  Report Type: 
  Country: None (occurrence: None)
  Receive Date: 20080827
  Receipt Date: 20080827
  Transmission Date: 20090109
  Serious: Yes (Other)
  Sender: FDA-Public Use
  Company Number: None

PATIENT
  Sex: Male
  Weight: 90.7194 kg

DRUGS (1)
  1. SINGULAIR [Suspect]
     Indication: SEASONAL ALLERGY
     Dosage: 1 DAILY PO
     Route: 048
     Dates: start: 20040319, end: 20080820

REACTIONS (3)
  - ANXIETY [None]
  - DEPRESSION [None]
  - LOSS OF EMPLOYMENT [None]
